FAERS Safety Report 25846721 (Version 1)
Quarter: 2025Q3

REPORT INFORMATION
  Report Type: Spontaneous
  Country: US (occurrence: None)
  Receive Date: 20250925
  Receipt Date: 20250925
  Transmission Date: 20251021
  Serious: No
  Sender: FDA-CTU
  Company Number: None

PATIENT
  Age: 4 Year
  Sex: Female
  Weight: 15 kg

DRUGS (1)
  1. MELPHALAN [Suspect]
     Active Substance: MELPHALAN
     Dates: end: 20240925

REACTIONS (4)
  - Maculopathy [None]
  - Toxicity to various agents [None]
  - Vascular stenosis [None]
  - Therapy interrupted [None]

NARRATIVE: CASE EVENT DATE: 20241016
